FAERS Safety Report 5280131-7 (Version None)
Quarter: 2007Q1

REPORT INFORMATION
  Report Type: 
  Country: None (occurrence: None)
  Receive Date: 20061215
  Receipt Date: 20060207
  Transmission Date: 20070707
  Serious: Yes (Other)
  Sender: FDA-Public Use
  Company Number: HQWYE732109FEB06

PATIENT
  Age: 61 Year
  Sex: Female

DRUGS (5)
  1. EFFEXOR XR [Suspect]
     Indication: DEPRESSION
     Dosage: 75 MG 1X PER 1 DAY, ORAL
     Route: 048
     Dates: start: 20050201
  2. ACTIVELLA [Concomitant]
  3. XANAX [Concomitant]
  4. RESTORIL [Concomitant]
  5. SYNTHROID [Concomitant]

REACTIONS (1)
  - HYPERTHYROIDISM [None]
